FAERS Safety Report 4582285-4 (Version None)
Quarter: 2005Q1

REPORT INFORMATION
  Report Type: 
  Country: None (occurrence: None)
  Receive Date: 20050214
  Receipt Date: 20050203
  Transmission Date: 20050727
  Serious: Yes (Hospitalization, Other)
  Sender: FDA-Public Use
  Company Number: CA-AMGEN-US111576

PATIENT
  Sex: Male
  Weight: 81 kg

DRUGS (18)
  1. ARANESP [Suspect]
     Indication: RENAL FAILURE CHRONIC
     Route: 042
     Dates: start: 20040701, end: 20050203
  2. ALTACE [Concomitant]
     Route: 048
  3. ASPIRIN [Concomitant]
     Route: 048
  4. BISOPROLOL FUMARATE [Concomitant]
     Route: 048
  5. CALCIUM CARBONATE [Concomitant]
     Route: 048
  6. CELLCEPT [Concomitant]
     Route: 048
  7. CHLORPROMAZINE [Concomitant]
     Route: 048
  8. CIPRO [Concomitant]
     Route: 048
  9. COMBIVENT [Concomitant]
     Route: 055
  10. FOLIC ACID [Concomitant]
     Route: 048
  11. FOSAMAX [Concomitant]
     Route: 048
  12. METRONIDAZOLE [Concomitant]
     Route: 048
  13. PAMIDRONATE DISODIUM [Concomitant]
     Route: 042
  14. PANTOPRAZOLE SODIUM [Concomitant]
     Route: 048
  15. PREDNISONE [Concomitant]
     Route: 048
  16. SYNTHROID [Concomitant]
     Route: 048
  17. VENTOLIN [Concomitant]
     Route: 055
  18. VITAMIN B COMPLEX WITH C [Concomitant]
     Route: 048

REACTIONS (18)
  - BLOOD ALBUMIN DECREASED [None]
  - BLOOD CREATININE INCREASED [None]
  - BLOOD PARATHYROID HORMONE INCREASED [None]
  - BONE MARROW DEPRESSION [None]
  - CYTOMEGALOVIRUS INFECTION [None]
  - ERYTHEMA INFECTIOSUM [None]
  - GASTROINTESTINAL HAEMORRHAGE [None]
  - HAEMOGLOBIN DECREASED [None]
  - HYPERSPLENISM [None]
  - LYMPHOPENIA [None]
  - OESOPHAGEAL ULCER HAEMORRHAGE [None]
  - PANCYTOPENIA [None]
  - PORTAL VEIN THROMBOSIS [None]
  - RETICULOCYTE COUNT DECREASED [None]
  - ROULEAUX FORMATION [None]
  - THERAPEUTIC RESPONSE DECREASED [None]
  - THROMBOCYTOPENIA [None]
  - WHITE BLOOD CELL COUNT DECREASED [None]
